FAERS Safety Report 5944160-X (Version None)
Quarter: 2008Q4

REPORT INFORMATION
  Report Type: 
  Country: None (occurrence: None)
  Receive Date: 20081106
  Receipt Date: 20081103
  Transmission Date: 20090506
  Serious: Yes (Death)
  Sender: FDA-Public Use
  Company Number: US-GILEAD-2008-0018829

PATIENT
  Sex: Female

DRUGS (12)
  1. LETAIRIS [Suspect]
     Indication: PULMONARY ARTERIAL HYPERTENSION
     Route: 048
     Dates: start: 20071116
  2. REVATIO [Concomitant]
  3. ADVAIR DISKUS 100/50 [Concomitant]
  4. ALBUTEROL [Concomitant]
  5. ASPIRIN [Concomitant]
  6. LASIX [Concomitant]
  7. CILOSTAZOL [Concomitant]
  8. CRESTOR [Concomitant]
  9. PREVACID [Concomitant]
  10. ZOLOFT [Concomitant]
  11. FOSAMAX PLUS D [Concomitant]
  12. LANOXIN [Concomitant]

REACTIONS (1)
  - DEATH [None]
